FAERS Safety Report 9008781 (Version 1)
Quarter: 2013Q1

REPORT INFORMATION
  Report Type: Spontaneous
  Country: GB (occurrence: GB)
  Receive Date: 20130111
  Receipt Date: 20130111
  Transmission Date: 20140127
  Serious: Yes (Life-Threatening, Other)
  Sender: FDA-Public Use
  Company Number: GB-ASTRAZENECA-2013SE01520

PATIENT
  Age: 65 Year
  Sex: Male
  Weight: 97.8 kg

DRUGS (4)
  1. SYMBICORT [Suspect]
     Indication: ASTHMA
     Dosage: ON UNKNOWN FREQUENCY
     Route: 055
     Dates: start: 20121113, end: 20121117
  2. BUDESONIDE [Concomitant]
     Indication: ASTHMA
     Dates: start: 20121113
  3. SALBUTAMOL [Concomitant]
     Indication: ASTHMA
  4. SIMVASTATIN [Concomitant]
     Indication: HYPERCHOLESTEROLAEMIA
     Route: 048

REACTIONS (4)
  - Syncope [Recovered/Resolved]
  - Dreamy state [Recovered/Resolved]
  - Amnesia [Recovered/Resolved]
  - Palpitations [Recovered/Resolved]
